FAERS Safety Report 4374660-8 (Version None)
Quarter: 2004Q2

REPORT INFORMATION
  Report Type: 
  Country: None (occurrence: None)
  Receive Date: 20040604
  Receipt Date: 20040524
  Transmission Date: 20050107
  Serious: Yes (Hospitalization)
  Sender: FDA-Public Use
  Company Number: 2004207071US

PATIENT
  Age: 73 Year
  Sex: Male
  Weight: 55.3 kg

DRUGS (4)
  1. DETROL LA [Suspect]
     Indication: HYPERTONIC BLADDER
     Dosage: 4 MG, QD, ORAL
     Route: 048
     Dates: start: 20040310, end: 20040330
  2. IMODIUM TABLET [Concomitant]
  3. LOMOTIL [Concomitant]
  4. IMODIUM LIQUID [Concomitant]

REACTIONS (1)
  - DIARRHOEA [None]
